FAERS Safety Report 22633650 (Version 1)
Quarter: 2023Q2

REPORT INFORMATION
  Report Type: Other
  Country: FR (occurrence: None)
  Receive Date: 20230623
  Receipt Date: 20230623
  Transmission Date: 20230721
  Serious: Yes (Other)
  Sender: FDA-Public Use
  Company Number: FR-ROCHE-3374064

PATIENT

DRUGS (2)
  1. ATEZOLIZUMAB [Suspect]
     Active Substance: ATEZOLIZUMAB
     Indication: Hepatocellular carcinoma
     Route: 065
  2. BEVACIZUMAB [Suspect]
     Active Substance: BEVACIZUMAB
     Indication: Hepatocellular carcinoma
     Route: 042

REACTIONS (21)
  - Pulmonary arterial hypertension [Unknown]
  - Hepatic failure [Unknown]
  - Anaphylactic reaction [Unknown]
  - Hypertension [Unknown]
  - Proteinuria [Unknown]
  - Rectal haemorrhage [Unknown]
  - Myocarditis [Unknown]
  - Asthenia [Unknown]
  - Pruritus [Unknown]
  - Nausea [Unknown]
  - Vomiting [Unknown]
  - Epistaxis [Unknown]
  - Erythema [Unknown]
  - Thyroid disorder [Unknown]
  - Atrial fibrillation [Unknown]
  - Uveitis [Unknown]
  - Decreased appetite [Unknown]
  - Abdominal pain [Unknown]
  - Dry mouth [Unknown]
  - Palmoplantar keratoderma [Unknown]
  - Oedema peripheral [Unknown]
